FAERS Safety Report 21516748 (Version 2)
Quarter: 2022Q4

REPORT INFORMATION
  Report Type: Spontaneous
  Country: GB (occurrence: GB)
  Receive Date: 20221028
  Receipt Date: 20221214
  Transmission Date: 20230112
  Serious: Yes (Hospitalization, Other)
  Sender: FDA-Public Use
  Company Number: GB-BoehringerIngelheim-2022-BI-199651

PATIENT
  Age: 7 Year
  Sex: Female

DRUGS (31)
  1. CLONIDINE [Suspect]
     Active Substance: CLONIDINE
     Indication: Sleep disorder
     Dates: start: 20210101
  2. ALFENTANIL [Suspect]
     Active Substance: ALFENTANIL
     Indication: Sedative therapy
     Dates: start: 20220110, end: 20220110
  3. ALFENTANIL [Suspect]
     Active Substance: ALFENTANIL
     Dates: start: 20220307, end: 20220307
  4. ALFENTANIL [Suspect]
     Active Substance: ALFENTANIL
     Dates: start: 20220404, end: 20220404
  5. ALFENTANIL [Suspect]
     Active Substance: ALFENTANIL
     Dates: start: 20220627, end: 20220627
  6. ALFENTANIL [Suspect]
     Active Substance: ALFENTANIL
     Dates: start: 20220926, end: 20220926
  7. ALFENTANIL [Suspect]
     Active Substance: ALFENTANIL
     Dates: start: 20220207, end: 20220207
  8. MELATONIN [Suspect]
     Active Substance: MELATONIN
     Indication: Sleep disorder
     Dates: start: 202008
  9. MIDAZOLAM [Suspect]
     Active Substance: MIDAZOLAM
     Indication: Sedative therapy
     Dates: start: 20220101, end: 20220101
  10. MIDAZOLAM [Suspect]
     Active Substance: MIDAZOLAM
     Dates: start: 20220207, end: 20220207
  11. MIDAZOLAM [Suspect]
     Active Substance: MIDAZOLAM
     Dates: start: 20220307, end: 20220307
  12. MIDAZOLAM [Suspect]
     Active Substance: MIDAZOLAM
     Dates: start: 20220404, end: 20220404
  13. MIDAZOLAM [Suspect]
     Active Substance: MIDAZOLAM
     Dates: start: 20220627, end: 20220627
  14. MIDAZOLAM [Suspect]
     Active Substance: MIDAZOLAM
     Dates: start: 20220926, end: 20220926
  15. NITROUS OXIDE [Suspect]
     Active Substance: NITROUS OXIDE
     Indication: Sedative therapy
     Dates: start: 20220110
  16. PROPOFOL [Suspect]
     Active Substance: PROPOFOL
     Indication: Sedative therapy
     Dates: start: 20220110, end: 20220110
  17. PROPOFOL [Suspect]
     Active Substance: PROPOFOL
     Dates: start: 20220207, end: 20220207
  18. PROPOFOL [Suspect]
     Active Substance: PROPOFOL
     Dates: start: 20220307, end: 20220307
  19. PROPOFOL [Suspect]
     Active Substance: PROPOFOL
     Dates: start: 20220404, end: 20220404
  20. PROPOFOL [Suspect]
     Active Substance: PROPOFOL
     Dates: start: 20220627, end: 20220627
  21. PROPOFOL [Suspect]
     Active Substance: PROPOFOL
     Dates: start: 20220926, end: 20220926
  22. SEVOFLURANE [Suspect]
     Active Substance: SEVOFLURANE
     Indication: Sedative therapy
     Dosage: INHALATION VAPOUR LIQUID
     Route: 055
     Dates: start: 20220110, end: 20220110
  23. SEVOFLURANE [Suspect]
     Active Substance: SEVOFLURANE
     Indication: Anaesthesia procedure
     Dosage: INHALATION VAPOUR LIQUID
     Route: 055
     Dates: start: 20220207, end: 20220207
  24. SEVOFLURANE [Suspect]
     Active Substance: SEVOFLURANE
     Dosage: INHALATION VAPOUR LIQUID
     Route: 055
     Dates: start: 20220307, end: 20220307
  25. SEVOFLURANE [Suspect]
     Active Substance: SEVOFLURANE
     Dosage: INHALATION VAPOUR LIQUID
     Route: 055
     Dates: start: 20220404, end: 20220404
  26. SEVOFLURANE [Suspect]
     Active Substance: SEVOFLURANE
     Dosage: INHALATION VAPOUR LIQUID
     Route: 055
     Dates: start: 20220627, end: 20220627
  27. SEVOFLURANE [Suspect]
     Active Substance: SEVOFLURANE
     Dosage: INHALATION VAPOUR LIQUID
     Route: 055
     Dates: start: 20220926, end: 20220926
  28. ZONISAMIDE [Suspect]
     Active Substance: ZONISAMIDE
     Indication: Epilepsy
     Dates: start: 20220903
  29. ACETAMINOPHEN [Suspect]
     Active Substance: ACETAMINOPHEN
     Indication: Constipation
     Dates: start: 20220120
  30. ACETAMINOPHEN [Suspect]
     Active Substance: ACETAMINOPHEN
     Indication: Pain
  31. CLOBAZAM [Suspect]
     Active Substance: CLOBAZAM
     Indication: Epilepsy
     Dates: start: 201910

REACTIONS (2)
  - Epilepsy with myoclonic-atonic seizures [Recovered/Resolved]
  - Change in seizure presentation [Recovered/Resolved]

NARRATIVE: CASE EVENT DATE: 20220926
